FAERS Safety Report 5052655-9 (Version None)
Quarter: 2006Q3

REPORT INFORMATION
  Report Type: 
  Country: None (occurrence: None)
  Receive Date: 20060712
  Receipt Date: 20060712
  Transmission Date: 20061208
  Serious: Yes (Other)
  Sender: FDA-Public Use
  Company Number: None

PATIENT
  Age: 56 Year
  Sex: Male
  Weight: 68 kg

DRUGS (10)
  1. OXYCODONE HCL [Suspect]
  2. BETAMETHASONE DIPROPIONATE [Concomitant]
  3. ALBUTEROL SPIROS [Concomitant]
  4. HYDROCHLOROTHIAZIDE [Concomitant]
  5. TERAZOSIN HCL [Concomitant]
  6. BENZONATATE [Concomitant]
  7. MELOXICAM [Concomitant]
  8. FLUNISOLIDE [Concomitant]
  9. IPRATROPIUM BROMIDE [Concomitant]
  10. IBUPROFEN [Concomitant]

REACTIONS (1)
  - RASH [None]
